FAERS Safety Report 9493611 (Version 1)
Quarter: 2013Q3

REPORT INFORMATION
  Report Type: Spontaneous
  Country: ZA (occurrence: ZA)
  Receive Date: 20130902
  Receipt Date: 20130902
  Transmission Date: 20140515
  Serious: Yes (Other)
  Sender: FDA-Public Use
  Company Number: ZA-PFIZER INC-2013248733

PATIENT
  Age: 24 Year
  Sex: Female

DRUGS (2)
  1. DOXORUBICIN HCL [Suspect]
     Indication: KAPOSI^S SARCOMA AIDS RELATED
     Dosage: 4 CYCLES
     Dates: start: 2012
  2. VINCRISTINE SULFATE [Suspect]
     Indication: KAPOSI^S SARCOMA AIDS RELATED
     Dosage: 4 CYCLES
     Dates: start: 2012

REACTIONS (2)
  - Disseminated intravascular coagulation [Unknown]
  - Stillbirth [Unknown]
